FAERS Safety Report 13934999 (Version 1)
Quarter: 2017Q3

REPORT INFORMATION
  Report Type: Spontaneous
  Country: US (occurrence: US)
  Receive Date: 20170905
  Receipt Date: 20170905
  Transmission Date: 20171127
  Serious: Yes (Hospitalization, Other)
  Sender: FDA-Public Use
  Company Number: US-APOTEX-2017AP017558

PATIENT
  Age: 69 Year
  Sex: Male

DRUGS (1)
  1. DESMOPRESSIN ACETATE. [Suspect]
     Active Substance: DESMOPRESSIN ACETATE
     Indication: DIABETES INSIPIDUS
     Dosage: 10 ?G, BID
     Route: 045

REACTIONS (3)
  - Osmotic demyelination syndrome [Unknown]
  - Water intoxication [Unknown]
  - Hyponatraemia [Recovered/Resolved]
